FAERS Safety Report 24109748 (Version 2)
Quarter: 2024Q4

REPORT INFORMATION
  Report Type: Spontaneous
  Country: JP (occurrence: JP)
  Receive Date: 20240718
  Receipt Date: 20241016
  Transmission Date: 20250114
  Serious: Yes (Death)
  Sender: ELI LILLY AND COMPANY
  Company Number: JP-ELI_LILLY_AND_COMPANY-JP202407009253

PATIENT
  Age: 77 Year
  Sex: Female
  Weight: 52 kg

DRUGS (9)
  1. CYRAMZA [Suspect]
     Active Substance: RAMUCIRUMAB
     Indication: Rectal cancer recurrent
     Dosage: 8 MG/KG, OTHER
     Route: 041
     Dates: start: 20240604, end: 20240709
  2. FLUOROURACIL [Concomitant]
     Active Substance: FLUOROURACIL
     Indication: Rectal cancer recurrent
     Dosage: 400 MG/M2, OTHER
     Route: 041
     Dates: start: 20240604, end: 20240618
  3. FLUOROURACIL [Concomitant]
     Active Substance: FLUOROURACIL
     Dosage: 2400 MG/M2, OTHER
     Route: 041
     Dates: start: 20240604, end: 20240618
  4. LEVOLEUCOVORIN CALCIUM [Concomitant]
     Active Substance: LEVOLEUCOVORIN CALCIUM
     Indication: Rectal cancer recurrent
  5. IRINOTECAN [Concomitant]
     Active Substance: IRINOTECAN
     Indication: Rectal cancer recurrent
     Dosage: 100 MG/M2, OTHER
     Route: 041
     Dates: start: 20240604, end: 20240618
  6. MINOCYCLINE HYDROCHLORIDE [Concomitant]
     Active Substance: MINOCYCLINE HYDROCHLORIDE
     Indication: Prophylaxis
     Dosage: 100 MG, BID
     Route: 048
  7. ENTECAVIR [Concomitant]
     Active Substance: ENTECAVIR
     Indication: Prophylaxis
     Dosage: 0.5 MG, DAILY
     Route: 048
  8. ESOMEPRAZOLE [Concomitant]
     Active Substance: ESOMEPRAZOLE
     Indication: Prophylaxis
     Dosage: 20 MG, DAILY
     Route: 048
  9. AZELNIDIPINE [Concomitant]
     Active Substance: AZELNIDIPINE
     Indication: Hypertension
     Dosage: 8 MG, DAILY
     Route: 048

REACTIONS (2)
  - Aortic dissection [Fatal]
  - Neutrophil count decreased [Not Recovered/Not Resolved]

NARRATIVE: CASE EVENT DATE: 20240709
